FAERS Safety Report 8473157-3 (Version None)
Quarter: 2012Q2

REPORT INFORMATION
  Report Type: 
  Country: None (occurrence: None)
  Receive Date: 20120627
  Receipt Date: 20120622
  Transmission Date: 20120825
  Serious: Yes (Other)
  Sender: FDA-Public Use
  Company Number: US-PFIZER INC-2012009171

PATIENT
  Sex: Male
  Weight: 102 kg

DRUGS (7)
  1. LYRICA [Suspect]
     Indication: ARTHRITIS
  2. SALSALATE [Suspect]
     Dosage: 750 MG, 3X/DAY
  3. SALICYLATE SODIUM [Concomitant]
     Dosage: 600 MG, 3X/DAY
  4. LYRICA [Suspect]
     Indication: FIBROMYALGIA
  5. LYRICA [Suspect]
     Indication: NEURALGIA
  6. ATENOLOL [Concomitant]
     Indication: HYPERTENSION
     Dosage: 50 MG, DAILY
  7. LYRICA [Suspect]
     Indication: NEUROPATHY PERIPHERAL
     Dosage: 200 MG, 2X/DAY
     Route: 048
     Dates: start: 20111001, end: 20111201

REACTIONS (7)
  - GRIP STRENGTH DECREASED [None]
  - DRUG INEFFECTIVE [None]
  - PAIN [None]
  - HYPOAESTHESIA [None]
  - CYST [None]
  - GAIT DISTURBANCE [None]
  - BURNING SENSATION [None]
